FAERS Safety Report 10405795 (Version 1)
Quarter: 2014Q3

REPORT INFORMATION
  Report Type: Spontaneous
  Country: US (occurrence: None)
  Receive Date: 20140821
  Receipt Date: 20140821
  Transmission Date: 20150326
  Serious: Yes (Hospitalization)
  Sender: FDA-Public Use
  Company Number: CIO14054048

PATIENT
  Age: 59 Year
  Sex: Female

DRUGS (4)
  1. DIAZEPAM (DIAZEPAM) [Concomitant]
     Active Substance: DIAZEPAM
  2. ZZZQUIL NIGHTTIME SLEEP-AID [Suspect]
     Active Substance: DIPHENHYDRAMINE HYDROCHLORIDE
     Indication: SUICIDE ATTEMPT
     Dosage: 12 OUNCES, 1 ONLY, ORAL
     Route: 048
     Dates: start: 20140805, end: 20140805
  3. OXYCODONE (OXYCODONE) [Concomitant]
     Active Substance: OXYCODONE
  4. ANTINEOPLASTIC AGENTS [Concomitant]
     Active Substance: UNSPECIFIED INGREDIENT

REACTIONS (5)
  - Suicide attempt [None]
  - Labelled drug-drug interaction medication error [None]
  - Intentional overdose [None]
  - Feeling abnormal [None]
  - Exposure via ingestion [None]

NARRATIVE: CASE EVENT DATE: 20140805
